FAERS Safety Report 20985755 (Version 7)
Quarter: 2023Q1

REPORT INFORMATION
  Report Type: Spontaneous
  Country: DE (occurrence: DE)
  Receive Date: 20220621
  Receipt Date: 20230222
  Transmission Date: 20230418
  Serious: Yes (Death, Life-Threatening, Hospitalization, Other)
  Sender: FDA-Public Use
  Company Number: DE-BoehringerIngelheim-2022-BI-174876

PATIENT
  Age: 73 Year
  Sex: Female
  Weight: 80 kg

DRUGS (23)
  1. DOCETAXEL [Suspect]
     Active Substance: DOCETAXEL
     Indication: Lung adenocarcinoma
     Dosage: UNK UNK, ONCE A DAY (35 MG/M2 BODY SURFACE AREA, LIQUID)
     Route: 042
     Dates: start: 20210625
  2. DOCETAXEL [Suspect]
     Active Substance: DOCETAXEL
     Dosage: 28 MG/M2, ONCE A DAY (28 MG/M2 BODY SURFACE AREA, LIQUID )
     Route: 042
     Dates: start: 20210625
  3. NINTEDANIB [Suspect]
     Active Substance: NINTEDANIB
     Indication: Lung adenocarcinoma
     Dosage: 150 MILLIGRAM (HALF IN A DAY)
     Route: 048
     Dates: start: 20210626, end: 20210809
  4. NINTEDANIB [Suspect]
     Active Substance: NINTEDANIB
     Dosage: 150 MILLIGRAM (HALF IN A DAY)
     Route: 048
     Dates: start: 20210626
  5. APREPITANT [Concomitant]
     Active Substance: APREPITANT
     Indication: Nausea
     Dosage: 125 MILLIGRAM
     Route: 065
  6. Aprepitant zentiva [Concomitant]
     Indication: Nausea
     Dosage: 125 MILLIGRAM, ONCE A DAY
     Route: 065
  7. Aprepitant zentiva [Concomitant]
     Indication: Nausea
     Dosage: 125 MILLIGRAM, ONCE A DAY
     Route: 065
  8. Aprepitant al [Concomitant]
     Indication: Product used for unknown indication
     Dosage: 125 MILLIGRAM, ONCE A DAY
     Route: 065
  9. ASPIRIN [Concomitant]
     Active Substance: ASPIRIN
     Indication: Product used for unknown indication
     Dosage: UNK, ONCE A DAY
     Route: 065
  10. CHOLECALCIFEROL [Concomitant]
     Active Substance: CHOLECALCIFEROL
     Indication: Product used for unknown indication
     Dosage: UNK, ONCE A DAY
     Route: 065
  11. DEXAMETHASONE [Concomitant]
     Active Substance: DEXAMETHASONE
     Indication: Product used for unknown indication
     Dosage: 8 MILLIGRAM, (0.5 A DAY)HALF A DAY
     Route: 065
     Dates: start: 20210822
  12. DEXAMETHASONE [Concomitant]
     Active Substance: DEXAMETHASONE
     Dosage: 8 MILLIGRAM, (0.5 A DAY)HALF A DAY
     Route: 065
     Dates: start: 20210823
  13. DEXAMETHASONE [Concomitant]
     Active Substance: DEXAMETHASONE
     Dosage: 8 MILLIGRAM, (0.5 A DAY)HALF A DAY
     Route: 065
     Dates: start: 20210824
  14. LEVOTHYROXINE SODIUM [Concomitant]
     Active Substance: LEVOTHYROXINE SODIUM
     Indication: Product used for unknown indication
     Dosage: UNK, ONCE A DAY
     Route: 065
  15. METAMIZOL [Concomitant]
     Active Substance: METAMIZOLE SODIUM
     Indication: Product used for unknown indication
     Route: 065
  16. MONTELUKAST [Concomitant]
     Active Substance: MONTELUKAST SODIUM
     Indication: Product used for unknown indication
     Dosage: 10 MILLIGRAM, ONCE A DAY
     Route: 065
  17. METAMIZOLE SODIUM [Concomitant]
     Active Substance: METAMIZOLE SODIUM
     Indication: Product used for unknown indication
     Dosage: UNK, AS NECESSARY
     Route: 065
  18. OLANZAPINE [Concomitant]
     Active Substance: OLANZAPINE
     Indication: Nausea
     Dosage: 5 MILLIGRAM, ONCE A DAY
     Route: 065
  19. ONDANSETRON RATIOPHARM [Concomitant]
     Indication: Nausea
     Dosage: 8 MILLIGRAM, (1-0-1-0 - IN CASE OF NAUSEA FOR MAX. 5 DAYS (FIRST CHOICE) )
     Route: 065
     Dates: start: 20210318
  20. PROMETHAZINE [Concomitant]
     Active Substance: PROMETHAZINE HYDROCHLORIDE
     Indication: Product used for unknown indication
     Dosage: 25 MILLIGRAM, TWO TIMES A DAY
     Route: 065
  21. SIMVASTATIN [Concomitant]
     Active Substance: SIMVASTATIN
     Indication: Product used for unknown indication
     Dosage: 20 MILLIGRAM, ONCE A DAY
     Route: 065
  22. ALIZAPRIDE HYDROCHLORIDE [Concomitant]
     Active Substance: ALIZAPRIDE HYDROCHLORIDE
     Indication: Nausea
     Dosage: UNK, 3 TIMES A DAY (1-1-1-0 - IN CASE OF NAUSEA)
     Route: 065
  23. DIMENHYDRINATE [Concomitant]
     Active Substance: DIMENHYDRINATE
     Indication: Nausea
     Dosage: UNK, AS NECESSARY (3X DAILY IF REQUIRED (SECOND CHOICE IN CASE OF NAUSEA) )
     Route: 065

REACTIONS (4)
  - Dyspnoea [Fatal]
  - Metabolic acidosis [Fatal]
  - Pericardial effusion [Fatal]
  - Nausea [Recovered/Resolved]

NARRATIVE: CASE EVENT DATE: 20210726
